FAERS Safety Report 26006898 (Version 1)
Quarter: 2025Q4

REPORT INFORMATION
  Report Type: Spontaneous
  Country: US (occurrence: None)
  Receive Date: 20251105
  Receipt Date: 20251105
  Transmission Date: 20260117
  Serious: Yes (Other)
  Sender: FDA-CTU
  Company Number: None

PATIENT
  Age: 48 Year
  Sex: Male
  Weight: 117 kg

DRUGS (4)
  1. BRIXADI [Suspect]
     Active Substance: BUPRENORPHINE
     Indication: Drug use disorder
  2. TRAZODONE [Concomitant]
     Active Substance: TRAZODONE HYDROCHLORIDE
  3. GABAPENTIN [Concomitant]
     Active Substance: GABAPENTIN
  4. ZANAFLEX [Concomitant]
     Active Substance: TIZANIDINE HYDROCHLORIDE

REACTIONS (9)
  - Adverse drug reaction [None]
  - Head discomfort [None]
  - Myalgia [None]
  - Eye disorder [None]
  - Cognitive disorder [None]
  - Memory impairment [None]
  - Incoherent [None]
  - Malaise [None]
  - Therapy cessation [None]

NARRATIVE: CASE EVENT DATE: 20251002
